FAERS Safety Report 4273219-0 (Version None)
Quarter: 2004Q1

REPORT INFORMATION
  Report Type: 
  Country: None (occurrence: None)
  Receive Date: 20040116
  Receipt Date: 20030922
  Transmission Date: 20041129
  Serious: Yes (Disabling)
  Sender: FDA-Public Use
  Company Number: GB-ROCHE-347397

PATIENT
  Age: 30 Year
  Sex: Male
  Weight: 70 kg

DRUGS (1)
  1. ROACCUTANE [Suspect]
     Indication: DRUG USE FOR UNKNOWN INDICATION
     Route: 065
     Dates: start: 20000128, end: 20000928

REACTIONS (1)
  - ERECTILE DYSFUNCTION [None]
